FAERS Safety Report 4275197-7 (Version None)
Quarter: 2004Q1

REPORT INFORMATION
  Report Type: 
  Country: None (occurrence: None)
  Receive Date: 20040116
  Receipt Date: 20040113
  Transmission Date: 20041129
  Serious: Yes (Other)
  Sender: FDA-Public Use
  Company Number: 2004194015US

PATIENT
  Sex: Female

DRUGS (3)
  1. DEPO-MEDROL [Suspect]
     Dosage: CYCLIC, EPIDURAL; 40 MG, QD, EPIDURAL; 40 MG, QID, EPIDURAL; EPIDURAL
     Route: 008
     Dates: start: 20020305
  2. DEPO-MEDROL [Suspect]
     Dosage: CYCLIC, EPIDURAL; 40 MG, QD, EPIDURAL; 40 MG, QID, EPIDURAL; EPIDURAL
     Route: 008
     Dates: start: 20020314
  3. DEPO-MEDROL [Suspect]
     Dosage: CYCLIC, EPIDURAL; 40 MG, QD, EPIDURAL; 40 MG, QID, EPIDURAL; EPIDURAL
     Route: 008
     Dates: start: 20020410

REACTIONS (11)
  - ARTHRITIS [None]
  - BRONCHITIS [None]
  - CUSHING'S SYNDROME [None]
  - IMPAIRED HEALING [None]
  - OFF LABEL USE [None]
  - PNEUMONIA [None]
  - POSTOPERATIVE INFECTION [None]
  - POSTOPERATIVE WOUND COMPLICATION [None]
  - PRESCRIBED OVERDOSE [None]
  - PSYCHOTIC DISORDER [None]
  - SUICIDE ATTEMPT [None]
